FAERS Safety Report 5824052-7 (Version None)
Quarter: 2008Q3

REPORT INFORMATION
  Report Type: 
  Country: None (occurrence: None)
  Receive Date: 20080728
  Receipt Date: 20080724
  Transmission Date: 20090109
  Serious: Yes (Other)
  Sender: FDA-Public Use
  Company Number: US-BRISTOL-MYERS SQUIBB COMPANY-14276703

PATIENT
  Age: 78 Year
  Sex: Male
  Weight: 118 kg

DRUGS (7)
  1. COUMADIN [Suspect]
  2. DILTIAZEM HCL [Concomitant]
     Indication: HYPERTENSION
     Route: 048
  3. DIGOXIN [Concomitant]
     Indication: ATRIAL FIBRILLATION
     Route: 048
  4. COREG [Concomitant]
     Indication: CARDIAC FAILURE CONGESTIVE
     Route: 048
  5. ZOCOR [Concomitant]
     Indication: BLOOD CHOLESTEROL INCREASED
     Route: 048
  6. LUPRON [Concomitant]
     Indication: PROSTATE CANCER
     Route: 030
  7. FRAGMIN [Concomitant]
     Dosage: 1 DOSAGE FORM = 18000 UNITS NOT SPECIFIED
     Route: 058

REACTIONS (2)
  - DRUG EFFECT DECREASED [None]
  - PULMONARY EMBOLISM [None]
